FAERS Safety Report 4576435-3 (Version None)
Quarter: 2005Q1

REPORT INFORMATION
  Report Type: 
  Country: None (occurrence: None)
  Receive Date: 20050207
  Receipt Date: 20050128
  Transmission Date: 20050727
  Serious: Yes (Hospitalization)
  Sender: FDA-Public Use
  Company Number: SP-2005-001999

PATIENT
  Sex: Male
  Weight: 71 kg

DRUGS (1)
  1. OLMETEC [Suspect]
     Indication: HYPERTENSION
     Dosage: 10 MG QD PO
     Route: 048

REACTIONS (2)
  - PROSTATITIS [None]
  - URINARY TRACT INFECTION [None]
